FAERS Safety Report 25345163 (Version 1)
Quarter: 2025Q2

REPORT INFORMATION
  Report Type: Spontaneous
  Country: RU (occurrence: RU)
  Receive Date: 20250522
  Receipt Date: 20250522
  Transmission Date: 20250716
  Serious: Yes (Other)
  Sender: ROCHE
  Company Number: RU-ROCHE-10000283484

PATIENT
  Age: 57 Year
  Sex: Male

DRUGS (6)
  1. ATEZOLIZUMAB [Suspect]
     Active Substance: ATEZOLIZUMAB
     Indication: Lung carcinoma cell type unspecified stage III
     Route: 065
     Dates: start: 20220623
  2. ATEZOLIZUMAB [Suspect]
     Active Substance: ATEZOLIZUMAB
     Route: 065
     Dates: start: 202209
  3. BEVACIZUMAB [Suspect]
     Active Substance: BEVACIZUMAB
     Indication: Lung carcinoma cell type unspecified stage III
     Route: 065
     Dates: start: 20220623
  4. BEVACIZUMAB [Suspect]
     Active Substance: BEVACIZUMAB
     Route: 065
     Dates: start: 202209
  5. CARBOPLATIN [Suspect]
     Active Substance: CARBOPLATIN
     Indication: Lung carcinoma cell type unspecified stage III
     Route: 065
     Dates: start: 20220623
  6. PACLITAXEL [Suspect]
     Active Substance: PACLITAXEL
     Indication: Lung carcinoma cell type unspecified stage III
     Route: 065
     Dates: start: 20220623

REACTIONS (6)
  - Neutropenia [Unknown]
  - Neuropathy peripheral [Unknown]
  - Hypothyroidism [Unknown]
  - Neurotoxicity [Unknown]
  - Leukopenia [Unknown]
  - Haematotoxicity [Unknown]
